FAERS Safety Report 4583499-X (Version None)
Quarter: 2005Q1

REPORT INFORMATION
  Report Type: 
  Country: None (occurrence: None)
  Receive Date: 20050211
  Receipt Date: 20050204
  Transmission Date: 20050727
  Serious: Yes (Death, Hospitalization, Other)
  Sender: FDA-Public Use
  Company Number: 2005025058

PATIENT
  Age: 82 Year
  Sex: Male

DRUGS (9)
  1. ATARAX [Suspect]
     Indication: PRURITUS
     Dosage: 25 MG (1 D), ORAL
     Route: 048
     Dates: start: 20041001, end: 20041220
  2. QUETIAPINE FUMARATE [Suspect]
     Indication: AGITATION
     Dosage: 50 MG (25 MG, 2 IN 1 D), ORAL
     Route: 048
     Dates: end: 20041230
  3. QUETIAPINE FUMARATE [Suspect]
     Indication: PSYCHOTIC DISORDER
     Dosage: 50 MG (25 MG, 2 IN 1 D), ORAL
     Route: 048
     Dates: end: 20041230
  4. DONEPEZIL HCL [Suspect]
     Indication: DEMENTIA
     Dosage: 5 MG (1 D), ORAL
     Route: 048
     Dates: start: 20040916, end: 20041101
  5. MEMANTINE (MEMANTINE) [Concomitant]
  6. ACETYLSALICYLIC ACID SRT [Concomitant]
  7. DIPYRIDAMOLE [Concomitant]
  8. PREDNISONE [Concomitant]
  9. OXYBUTYNIN CHLORIDE [Concomitant]

REACTIONS (6)
  - BLOOD CREATINE PHOSPHOKINASE INCREASED [None]
  - ECZEMA [None]
  - MUSCULOSKELETAL STIFFNESS [None]
  - MYALGIA [None]
  - NEUROLEPTIC MALIGNANT SYNDROME [None]
  - PRURITUS [None]
